FAERS Safety Report 25029288 (Version 2)
Quarter: 2025Q1

REPORT INFORMATION
  Report Type: Report from Study
  Country: US (occurrence: US)
  Receive Date: 20250303
  Receipt Date: 20250306
  Transmission Date: 20250409
  Serious: No
  Sender: ABBVIE
  Company Number: US-ABBVIE-6158811

PATIENT
  Age: 62 Year
  Sex: Female

DRUGS (1)
  1. VYALEV [Suspect]
     Active Substance: FOSCARBIDOPA\FOSLEVODOPA
     Indication: Parkinson^s disease
     Route: 058
     Dates: start: 20250227, end: 20250227

REACTIONS (3)
  - Influenza [Not Recovered/Not Resolved]
  - Intentional medical device removal by patient [Unknown]
  - Pain [Unknown]

NARRATIVE: CASE EVENT DATE: 20250201
